FAERS Safety Report 5609200-6 (Version None)
Quarter: 2008Q1

REPORT INFORMATION
  Report Type: 
  Country: None (occurrence: None)
  Receive Date: 20080131
  Receipt Date: 20080128
  Transmission Date: 20080703
  Serious: Yes (Death, Other)
  Sender: FDA-Public Use
  Company Number: DE-AVENTIS-200712735DE

PATIENT
  Age: 53 Year
  Sex: Male
  Weight: 110 kg

DRUGS (4)
  1. CLEXANE [Suspect]
     Indication: THROMBOSIS PROPHYLAXIS
     Route: 058
     Dates: start: 20071020
  2. MIRTAZAPIN HEXAL [Concomitant]
     Route: 049
  3. CEFUROXIME [Concomitant]
     Indication: INFECTION PROPHYLAXIS
     Route: 042
     Dates: start: 20071019, end: 20071022
  4. NOVALGIN                           /00039501/ [Concomitant]
     Indication: POSTOPERATIVE ANALGESIA
     Route: 048
     Dates: start: 20071019, end: 20071022

REACTIONS (2)
  - DRUG INEFFECTIVE [None]
  - PULMONARY EMBOLISM [None]
